FAERS Safety Report 6803571-0 (Version None)
Quarter: 2010Q2

REPORT INFORMATION
  Report Type: 
  Country: None (occurrence: None)
  Receive Date: 20100628
  Receipt Date: 20100622
  Transmission Date: 20101027
  Serious: Yes (Hospitalization)
  Sender: FDA-Public Use
  Company Number: JP-EISAI INC.-E2020-06587-SPO-JP

PATIENT
  Age: 93 Year
  Sex: Male

DRUGS (5)
  1. ARICEPT [Suspect]
     Indication: DEMENTIA ALZHEIMER'S TYPE
     Route: 048
     Dates: start: 20091001, end: 20091101
  2. ARICEPT [Suspect]
     Route: 048
     Dates: start: 20091101, end: 20100401
  3. ARICEPT [Suspect]
     Route: 048
     Dates: start: 20100401, end: 20100422
  4. AMLODIN [Concomitant]
     Indication: HYPERTENSION
     Dosage: UNKNOWN
     Route: 048
  5. KENTEN [Concomitant]
     Indication: PAIN
     Route: 048
     Dates: start: 20100401, end: 20100420

REACTIONS (1)
  - RHABDOMYOLYSIS [None]
